FAERS Safety Report 6380417-9 (Version None)
Quarter: 2009Q3

REPORT INFORMATION
  Report Type: 
  Country: None (occurrence: None)
  Receive Date: 20090929
  Receipt Date: 20090917
  Transmission Date: 20100115
  Serious: Yes (Hospitalization, Other)
  Sender: FDA-Public Use
  Company Number: PHHY2009CA40549

PATIENT
  Sex: Female

DRUGS (7)
  1. EXJADE [Suspect]
     Indication: MYELODYSPLASTIC SYNDROME
     Dosage: 500 MG, UNK
     Route: 048
     Dates: start: 20070901
  2. EXJADE [Suspect]
     Indication: IRON OVERLOAD
     Dosage: 500 MG/DAY
     Dates: start: 20090701
  3. ARANESP [Concomitant]
  4. PARIET [Concomitant]
  5. LIPITOR [Concomitant]
  6. FRAGMIN [Concomitant]
  7. VAGIFEM [Concomitant]

REACTIONS (2)
  - CYSTITIS [None]
  - DIARRHOEA [None]
